FAERS Safety Report 4455584-4 (Version None)
Quarter: 2004Q3

REPORT INFORMATION
  Report Type: 
  Country: None (occurrence: None)
  Receive Date: 20040922
  Receipt Date: 20040914
  Transmission Date: 20050211
  Serious: Yes (Hospitalization)
  Sender: FDA-Public Use
  Company Number: US-JNJFOC-20040702273

PATIENT
  Sex: Female
  Weight: 73.94 kg

DRUGS (10)
  1. DURAGESIC [Suspect]
     Route: 062
     Dates: start: 20020101
  2. SULFASALAZINE [Concomitant]
  3. ARAVA [Concomitant]
  4. TOPROL-XL [Concomitant]
  5. DIGOXIN [Concomitant]
     Route: 049
  6. PREVACID [Concomitant]
     Route: 049
  7. ACTONEL [Concomitant]
     Route: 049
  8. SYNTHROID [Concomitant]
     Route: 049
  9. CYCLOBENZATRINE [Concomitant]
     Route: 049
  10. CYTOMEL [Concomitant]
     Route: 049

REACTIONS (5)
  - PHARMACEUTICAL PRODUCT COMPLAINT [None]
  - PRURITUS [None]
  - ROAD TRAFFIC ACCIDENT [None]
  - SICK SINUS SYNDROME [None]
  - THERAPEUTIC RESPONSE DECREASED [None]
